FAERS Safety Report 8663705 (Version 2)
Quarter: 2013Q2

REPORT INFORMATION
  Report Type: Spontaneous
  Country: US (occurrence: None)
  Receive Date: 20120402
  Receipt Date: 20130329
  Transmission Date: 20140414
  Serious: Yes (Other)
  Sender: FDA-Public Use
  Company Number: AUR-APL-2011-06083

PATIENT
  Age: 37 Year
  Sex: Female
  Weight: 47.63 kg

DRUGS (1)
  1. SERTRALINE HYDROCHLORIDE [Suspect]
     Indication: DEPRESSION
     Dosage: 100 MG (100 MG, 1 IN 1 D)
     Dates: start: 20110201, end: 20110301

REACTIONS (2)
  - DEPRESSION [None]
  - HEADACHE [None]
